FAERS Safety Report 7970438-4 (Version None)
Quarter: 2011Q4

REPORT INFORMATION
  Report Type: 
  Country: None (occurrence: None)
  Receive Date: 20111122
  Receipt Date: 20110816
  Transmission Date: 20120403
  Serious: No
  Sender: FDA-Public Use
  Company Number: PHEH2011US02061

PATIENT
  Age: 39 Year
  Sex: Male
  Weight: 95.2 kg

DRUGS (2)
  1. GILENYA [Suspect]
     Dosage: 0.5 MG, QD, ORAL
     Route: 048
  2. CENTRUM (MINERAL NOS, VITAMINS NOS) [Concomitant]

REACTIONS (2)
  - HEADACHE [None]
  - FATIGUE [None]
